FAERS Safety Report 6009272-3 (Version None)
Quarter: 2008Q4

REPORT INFORMATION
  Report Type: 
  Country: None (occurrence: None)
  Receive Date: 20081217
  Receipt Date: 20071105
  Transmission Date: 20090506
  Serious: No
  Sender: FDA-Public Use
  Company Number: US-AMGEN-KDL251351

PATIENT
  Sex: Female

DRUGS (2)
  1. ENBREL [Suspect]
     Indication: RHEUMATOID ARTHRITIS
     Route: 058
     Dates: start: 20070315
  2. ENBREL [Suspect]
     Indication: PSORIASIS

REACTIONS (4)
  - ERYTHEMA [None]
  - NAIL DISCOLOURATION [None]
  - NAIL DISORDER [None]
  - PAIN IN EXTREMITY [None]
